FAERS Safety Report 7569280-8 (Version None)
Quarter: 2011Q2

REPORT INFORMATION
  Report Type: 
  Country: None (occurrence: None)
  Receive Date: 20110623
  Receipt Date: 20110622
  Transmission Date: 20111010
  Serious: Yes (Hospitalization, Other)
  Sender: FDA-Public Use
  Company Number: PHHO2011PL04089

PATIENT
  Sex: Female
  Weight: 58.1 kg

DRUGS (3)
  1. GILENYA [Suspect]
     Dosage: 0.5 MG, QD
     Route: 048
     Dates: start: 20100330, end: 20110110
  2. NORDETTE-28 [Concomitant]
     Indication: CONTRACEPTION
     Dosage: UNK
     Dates: start: 20101009, end: 20110224
  3. GILENYA [Suspect]
     Dosage: DOSE BLINDED
     Route: 048
     Dates: start: 20070725, end: 20100329

REACTIONS (2)
  - CEREBELLAR SYNDROME [None]
  - MULTIPLE SCLEROSIS RELAPSE [None]
